FAERS Safety Report 5918421-4 (Version None)
Quarter: 2008Q4

REPORT INFORMATION
  Report Type: 
  Country: None (occurrence: None)
  Receive Date: 20081014
  Receipt Date: 20081014
  Transmission Date: 20090506
  Serious: Yes (Other)
  Sender: FDA-Public Use
  Company Number: None

PATIENT
  Age: 50 Year
  Sex: Male
  Weight: 78.0187 kg

DRUGS (1)
  1. REQUIP [Suspect]
     Indication: PARKINSON'S DISEASE
     Dosage: 2MG QD TO BID 047
     Dates: start: 20080909, end: 20081002

REACTIONS (3)
  - DRUG INTOLERANCE [None]
  - GASTRITIS [None]
  - VOMITING [None]
